FAERS Safety Report 9976568 (Version 1)
Quarter: 2014Q1

REPORT INFORMATION
  Report Type: Report from Study
  Country: US (occurrence: US)
  Receive Date: 20140306
  Receipt Date: 20140306
  Transmission Date: 20141002
  Serious: No
  Sender: FDA-Public Use
  Company Number: US-ABBVIE-13P-163-1166791-00

PATIENT
  Age: 31 Year
  Sex: Female

DRUGS (2)
  1. HUMIRA [Suspect]
     Indication: CROHN^S DISEASE
     Dates: start: 20130726, end: 20131018
  2. PRILOSEC [Concomitant]
     Indication: PRODUCT USED FOR UNKNOWN INDICATION
     Dosage: OTC

REACTIONS (5)
  - Muscle strain [Recovering/Resolving]
  - Cellulitis [Recovering/Resolving]
  - Feeling hot [Recovering/Resolving]
  - Rash erythematous [Recovering/Resolving]
  - Furuncle [Recovering/Resolving]
